FAERS Safety Report 9390861 (Version 2)
Quarter: 2013Q3

REPORT INFORMATION
  Report Type: Spontaneous
  Country: FR (occurrence: FR)
  Receive Date: 20130709
  Receipt Date: 20130812
  Transmission Date: 20140515
  Serious: Yes (Hospitalization, Other)
  Sender: FDA-Public Use
  Company Number: FR-AMGEN-FRASP2013047465

PATIENT
  Age: 58 Year
  Sex: Male
  Weight: 85 kg

DRUGS (12)
  1. VECTIBIX [Suspect]
     Indication: COLORECTAL CANCER
     Dosage: 6 MG/KG, 15D
     Route: 042
     Dates: start: 20120227, end: 20130622
  2. VECTIBIX [Suspect]
     Indication: PELVIC NEOPLASM
  3. VECTIBIX [Suspect]
     Indication: HEPATIC CANCER
  4. OXALIPLATIN [Concomitant]
     Indication: COLORECTAL CANCER
     Dosage: 85 MG/M2, 15D
     Route: 042
     Dates: start: 20121203
  5. OXALIPLATIN [Concomitant]
     Indication: PELVIC NEOPLASM
  6. OXALIPLATIN [Concomitant]
     Indication: HEPATIC CANCER
  7. 5-FU                               /00098801/ [Concomitant]
     Indication: COLORECTAL CANCER
     Dosage: 2400 MG/M2/D, 15D
     Route: 042
     Dates: start: 20121203
  8. 5-FU                               /00098801/ [Concomitant]
     Indication: PELVIC NEOPLASM
  9. 5-FU                               /00098801/ [Concomitant]
     Indication: HEPATIC CANCER
  10. LEVOFOLINATE CALCIUM [Concomitant]
     Indication: COLORECTAL CANCER
     Dosage: 200 MG/M2, 15D
     Route: 042
     Dates: start: 20121203
  11. LEVOFOLINATE CALCIUM [Concomitant]
     Indication: PELVIC NEOPLASM
  12. LEVOFOLINATE CALCIUM [Concomitant]
     Indication: HEPATIC CANCER

REACTIONS (11)
  - Osteonecrosis [Not Recovered/Not Resolved]
  - Multiple fractures [Not Recovered/Not Resolved]
  - Rib fracture [Unknown]
  - Renal failure [Unknown]
  - Neurotoxicity [Unknown]
  - Hip fracture [Unknown]
  - Hypercalcaemia [Unknown]
  - Hypomagnesaemia [Unknown]
  - Bone pain [Unknown]
  - Cholestasis [Unknown]
  - Injury [Unknown]
